FAERS Safety Report 9833579 (Version 1)
Quarter: 2014Q1

REPORT INFORMATION
  Report Type: Spontaneous
  Country: US (occurrence: US)
  Receive Date: 20140122
  Receipt Date: 20140122
  Transmission Date: 20141002
  Serious: Yes (Hospitalization)
  Sender: FDA-Public Use
  Company Number: US-BIOGENIDEC-2014BI005360

PATIENT
  Age: 46 Year
  Sex: Female

DRUGS (1)
  1. AVONEX [Suspect]
     Indication: MULTIPLE SCLEROSIS
     Route: 030
     Dates: start: 19991201

REACTIONS (5)
  - Ankle fracture [Recovered/Resolved]
  - Haemorrhage [Recovered/Resolved]
  - Memory impairment [Not Recovered/Not Resolved]
  - Hallucination [Recovered/Resolved]
  - Paranoia [Recovered/Resolved]
